FAERS Safety Report 18163818 (Version 1)
Quarter: 2020Q3

REPORT INFORMATION
  Report Type: Spontaneous
  Country: US (occurrence: US)
  Receive Date: 20200818
  Receipt Date: 20200818
  Transmission Date: 20201103
  Serious: No
  Sender: FDA-Public Use
  Company Number: US-OTSUKA-2019_010519

PATIENT

DRUGS (2)
  1. ABILIFY MAINTENA [Suspect]
     Active Substance: ARIPIPRAZOLE
     Indication: GRANDIOSITY
  2. ABILIFY MAINTENA [Suspect]
     Active Substance: ARIPIPRAZOLE
     Indication: PARANOIA
     Dosage: 400 MG (EVERY 4WKS)
     Route: 030

REACTIONS (2)
  - Therapeutic product effect decreased [Unknown]
  - Product use in unapproved indication [Unknown]
